FAERS Safety Report 5005084-8 (Version None)
Quarter: 2006Q2

REPORT INFORMATION
  Report Type: 
  Country: None (occurrence: None)
  Receive Date: 20060518
  Receipt Date: 20060505
  Transmission Date: 20061013
  Serious: Yes (Other)
  Sender: FDA-Public Use
  Company Number: PHEH2006US05943

PATIENT
  Age: 10 Year
  Sex: Male

DRUGS (1)
  1. ZELNORM [Suspect]
     Indication: CONSTIPATION
     Dosage: 2 MG, BID
     Route: 048
     Dates: start: 20040221

REACTIONS (3)
  - CORRECTIVE LENS USER [None]
  - VISION BLURRED [None]
  - VISUAL ACUITY REDUCED [None]
